FAERS Safety Report 12886241 (Version 1)
Quarter: 2016Q4

REPORT INFORMATION
  Report Type: Spontaneous
  Country: IT (occurrence: IT)
  Receive Date: 20161026
  Receipt Date: 20161026
  Transmission Date: 20170207
  Serious: Yes (Hospitalization)
  Sender: FDA-Public Use
  Company Number: IT-BAYER-2016-200527

PATIENT
  Age: 61 Year
  Sex: Female

DRUGS (4)
  1. NIMESULIDE [Suspect]
     Active Substance: NIMESULIDE
     Indication: DRUG ABUSE
     Dosage: 1 DF, ONCE
     Route: 048
     Dates: start: 20160603, end: 20160603
  2. ACETYLSALICYLIC ACID({=100 MG) [Suspect]
     Active Substance: ASPIRIN
     Indication: DRUG ABUSE
     Dosage: 2 DF, ONCE
     Route: 048
     Dates: start: 20160603, end: 20160603
  3. TACHIPIRINA [Suspect]
     Active Substance: ACETAMINOPHEN
     Indication: DRUG ABUSE
     Dosage: 8000 MG, ONCE
     Route: 048
     Dates: start: 20160603, end: 20160603
  4. EFEXOR [Suspect]
     Active Substance: VENLAFAXINE HYDROCHLORIDE
     Indication: DRUG ABUSE
     Dosage: 300 MG, ONCE
     Route: 048
     Dates: start: 20160603, end: 20160603

REACTIONS (6)
  - Sopor [Recovering/Resolving]
  - Intentional self-injury [Recovering/Resolving]
  - Alanine aminotransferase increased [Recovering/Resolving]
  - Poverty of speech [Recovering/Resolving]
  - Petit mal epilepsy [Recovering/Resolving]
  - Drug abuse [Recovering/Resolving]

NARRATIVE: CASE EVENT DATE: 20160603
